FAERS Safety Report 19632929 (Version 2)
Quarter: 2021Q3

REPORT INFORMATION
  Report Type: Spontaneous
  Country: US (occurrence: US)
  Receive Date: 20210730
  Receipt Date: 20210928
  Transmission Date: 20211014
  Serious: Yes (Other)
  Sender: FDA-Public Use
  Company Number: US-ASTRAZENECA-2021A638167

PATIENT
  Age: 16613 Day

DRUGS (1)
  1. SYMLIN [Suspect]
     Active Substance: PRAMLINTIDE ACETATE
     Indication: WEIGHT DECREASED
     Route: 058

REACTIONS (4)
  - Intentional device misuse [Unknown]
  - Device issue [Unknown]
  - Product use issue [Unknown]
  - Cataract [Unknown]

NARRATIVE: CASE EVENT DATE: 20210722
